FAERS Safety Report 8567799-4 (Version None)
Quarter: 2012Q3

REPORT INFORMATION
  Report Type: 
  Country: None (occurrence: None)
  Receive Date: 20120803
  Receipt Date: 20120718
  Transmission Date: 20120928
  Serious: Yes (Hospitalization)
  Sender: FDA-Public Use
  Company Number: JP-009507513-1207JPN001479

PATIENT

DRUGS (12)
  1. PEG-INTRON [Suspect]
     Indication: HEPATITIS C
     Dosage: 1.5MCG/KG/WEEK
     Route: 058
     Dates: start: 20120313, end: 20120404
  2. URSO 250 [Concomitant]
     Indication: HEPATITIS C
     Route: 048
     Dates: start: 20120629
  3. REBETOL [Suspect]
     Indication: HEPATITIS C
     Route: 048
     Dates: start: 20120313, end: 20120404
  4. TELAPREVIR [Concomitant]
     Indication: HEPATITIS C
     Route: 048
     Dates: start: 20120313, end: 20120404
  5. CELESTAMINE TAB [Concomitant]
     Route: 048
     Dates: end: 20120425
  6. LASIX [Concomitant]
     Indication: PROPHYLAXIS
     Route: 048
     Dates: end: 20120501
  7. LASIX [Concomitant]
     Route: 048
     Dates: end: 20120501
  8. BACTRIM [Suspect]
     Indication: ADVERSE EVENT
     Route: 048
     Dates: end: 20120609
  9. ALDACTONE [Concomitant]
     Indication: PROPHYLAXIS
     Route: 048
     Dates: end: 20120501
  10. TELAVIC [Suspect]
     Indication: HEPATITIS C
     Route: 048
     Dates: start: 20120313, end: 20120404
  11. NEO-MINOPHAGEN C [Concomitant]
     Indication: HEPATITIS C
     Route: 042
     Dates: start: 20120623
  12. CELESTAMINE TAB [Concomitant]
     Indication: PROPHYLAXIS
     Route: 048
     Dates: end: 20120425

REACTIONS (3)
  - INTERSTITIAL LUNG DISEASE [None]
  - HEPATIC FAILURE [None]
  - OEDEMA [None]
